FAERS Safety Report 8014723-9 (Version None)
Quarter: 2011Q4

REPORT INFORMATION
  Report Type: 
  Country: None (occurrence: None)
  Receive Date: 20111229
  Receipt Date: 20111223
  Transmission Date: 20120403
  Serious: Yes (Life-Threatening, Hospitalization, Other)
  Sender: FDA-Public Use
  Company Number: DE-ABBOTT-11P-062-0871172-00

PATIENT
  Age: 73 Year
  Sex: Male

DRUGS (9)
  1. CARBAMAZEPINE [Concomitant]
     Indication: PRODUCT USED FOR UNKNOWN INDICATION
     Dates: start: 20110812, end: 20110812
  2. VALPROIC ACID [Suspect]
     Indication: STATUS EPILEPTICUS
     Dosage: SOLVENT FOR SOLUTION
     Route: 042
     Dates: start: 20110813, end: 20110814
  3. FERRLECIT [Concomitant]
     Indication: PRODUCT USED FOR UNKNOWN INDICATION
     Dates: start: 20110729
  4. METOCLOPRAMIDE [Concomitant]
     Indication: PRODUCT USED FOR UNKNOWN INDICATION
     Dates: start: 20110729
  5. DEKRISTOL [Concomitant]
     Indication: PRODUCT USED FOR UNKNOWN INDICATION
     Dates: start: 20110729
  6. EPOETIN ALFA [Concomitant]
     Indication: PRODUCT USED FOR UNKNOWN INDICATION
     Dates: start: 20110729
  7. NEBIVOLOL HCL [Concomitant]
     Indication: PRODUCT USED FOR UNKNOWN INDICATION
     Dates: start: 20110713, end: 20110813
  8. NOVAMINOSULFON [Concomitant]
     Indication: PRODUCT USED FOR UNKNOWN INDICATION
     Dates: start: 20110729
  9. VALPROATE SODIUM [Suspect]
     Indication: STATUS EPILEPTICUS
     Dosage: TWICE A DAY, EXTENDED RELEASE
     Route: 048
     Dates: start: 20110814, end: 20110815

REACTIONS (2)
  - CONDITION AGGRAVATED [None]
  - ELECTROCARDIOGRAM QT PROLONGED [None]
